FAERS Safety Report 18435801 (Version 1)
Quarter: 2020Q4

REPORT INFORMATION
  Report Type: Spontaneous
  Country: IN (occurrence: IN)
  Receive Date: 20201028
  Receipt Date: 20201028
  Transmission Date: 20210114
  Serious: Yes (Life-Threatening, Hospitalization)
  Sender: FDA-Public Use
  Company Number: IN-LUPIN LIMITED-2020-07802

PATIENT
  Age: 19 Year
  Sex: Male

DRUGS (8)
  1. TORSEMIDE. [Concomitant]
     Active Substance: TORSEMIDE
     Indication: MYOCARDITIS SEPTIC
     Dosage: 20 MILLIGRAM, TID
     Route: 065
  2. DOBUTAMINE [Suspect]
     Active Substance: DOBUTAMINE HYDROCHLORIDE
     Indication: SEPTIC SHOCK
     Dosage: UNK (RECEIVED HIGH DOSAGE)
     Route: 065
  3. NOREPINEPHRINE. [Suspect]
     Active Substance: NOREPINEPHRINE
     Indication: SEPTIC SHOCK
     Dosage: UNK (INITIALLY RECEIVED HIGH DOSAGE AND THEN MINIMUM DOSE)
     Route: 065
  4. EPINEPHRINE. [Suspect]
     Active Substance: EPINEPHRINE
     Indication: SEPTIC SHOCK
     Dosage: UNK (INITIALLY RECEIVED HIGH DOSAGE AND THEN MINIMUM DOSE)
     Route: 065
  5. FONDAPARINUX [Concomitant]
     Active Substance: FONDAPARINUX
     Indication: MYOCARDITIS SEPTIC
     Dosage: 2.5 MILLIGRAM
     Route: 065
  6. HYDROCORTISONE. [Suspect]
     Active Substance: HYDROCORTISONE
     Indication: SEPTIC SHOCK
     Dosage: UNK (RECEIVED STRESS DOSE)
     Route: 065
  7. CLOPIDOGREL [Concomitant]
     Active Substance: CLOPIDOGREL BISULFATE
     Indication: MYOCARDITIS SEPTIC
     Dosage: 75 MILLIGRAM
     Route: 065
  8. ASPIRINE [Concomitant]
     Active Substance: ASPIRIN
     Indication: MYOCARDITIS SEPTIC
     Dosage: 75 MILLIGRAM, QD
     Route: 065

REACTIONS (1)
  - Drug ineffective [Unknown]
